FAERS Safety Report 5350999-4 (Version None)
Quarter: 2007Q2

REPORT INFORMATION
  Report Type: 
  Country: None (occurrence: None)
  Receive Date: 20070608
  Receipt Date: 20070607
  Transmission Date: 20071010
  Serious: Yes (Hospitalization)
  Sender: FDA-Public Use
  Company Number: ZA-BRISTOL-MYERS SQUIBB COMPANY-13770987

PATIENT
  Age: 61 Year
  Sex: Male
  Weight: 81 kg

DRUGS (9)
  1. IRBESARTAN [Suspect]
     Indication: HYPERTENSION
     Dates: start: 20031106
  2. BLINDED: PLACEBO [Suspect]
     Indication: HYPERTENSION
     Dates: start: 20031106
  3. CLOPIDOGREL BISULFATE [Suspect]
     Indication: PROPHYLAXIS
     Dates: start: 20031107
  4. ASPIRIN [Suspect]
     Indication: PROPHYLAXIS
     Dates: start: 20031107
  5. RADIOTHERAPY [Concomitant]
  6. DIGOXIN [Concomitant]
  7. ATENOLOL [Concomitant]
  8. LASIX [Concomitant]
  9. CLEXANE [Concomitant]

REACTIONS (1)
  - ANGINA UNSTABLE [None]
